FAERS Safety Report 9554610 (Version 2)
Quarter: 2013Q4

REPORT INFORMATION
  Report Type: Spontaneous
  Country: US (occurrence: US)
  Receive Date: 20130925
  Receipt Date: 20131011
  Transmission Date: 20140711
  Serious: No
  Sender: FDA-Public Use
  Company Number: US-009507513-1309USA012102

PATIENT
  Age: 30 Year
  Sex: Female
  Weight: 68.27 kg

DRUGS (4)
  1. CLARITIN-D-24 [Suspect]
     Indication: HYPERSENSITIVITY
     Dosage: UNK, ONCE
     Route: 048
     Dates: start: 20130919, end: 20130920
  2. CLARITIN-D-24 [Suspect]
     Indication: LACRIMATION INCREASED
  3. CLARITIN-D-24 [Suspect]
     Indication: RHINORRHOEA
  4. CLARITIN-D-24 [Suspect]
     Indication: SNEEZING

REACTIONS (1)
  - Drug ineffective [Unknown]
